FAERS Safety Report 6652255-0 (Version None)
Quarter: 2010Q1

REPORT INFORMATION
  Report Type: 
  Country: None (occurrence: None)
  Receive Date: 20100325
  Receipt Date: 20100322
  Transmission Date: 20100710
  Serious: Yes (Hospitalization)
  Sender: FDA-Public Use
  Company Number: DE-ABBOTT-05P-062-0289378-00

PATIENT
  Sex: Female
  Weight: 90 kg

DRUGS (6)
  1. HUMIRA [Suspect]
     Indication: RHEUMATOID ARTHRITIS
     Route: 058
     Dates: start: 20031113, end: 20041221
  2. COMERCIAL HUMIRA [Concomitant]
     Indication: RHEUMATOID ARTHRITIS
     Route: 058
     Dates: start: 20031007, end: 20041221
  3. RADIOIODINE THERAPY [Concomitant]
     Indication: HYPERTHYROIDISM
     Dates: start: 19980101
  4. L THYROXCIN [Concomitant]
     Indication: HYPOTHYROIDISM
     Dates: start: 19990701
  5. VINCAMIN [Concomitant]
     Indication: MENIERE'S DISEASE
     Dates: start: 20021001
  6. DECORTIN 20 [Concomitant]
     Indication: RHEUMATOID ARTHRITIS
     Dates: start: 20041207

REACTIONS (2)
  - PLEURISY [None]
  - PNEUMONIA [None]
